FAERS Safety Report 26161623 (Version 1)
Quarter: 2025Q4

REPORT INFORMATION
  Report Type: Report from Study
  Country: KR (occurrence: KR)
  Receive Date: 20251216
  Receipt Date: 20251216
  Transmission Date: 20260118
  Serious: Yes (Hospitalization)
  Sender: ABBVIE
  Company Number: KR-ABBVIE-6587677

PATIENT
  Age: 34 Year
  Sex: Male
  Weight: 67 kg

DRUGS (4)
  1. RINVOQ [Suspect]
     Active Substance: UPADACITINIB
     Indication: Colitis ulcerative
     Dosage: STRENGTH-45MG, MODIFIED-RELEASE FILM-COATED TABLET
     Route: 048
     Dates: start: 20250910
  2. MESALAMINE [Concomitant]
     Active Substance: MESALAMINE
     Indication: Colitis ulcerative
     Dosage: STRENGTH-1200MG
     Route: 048
     Dates: start: 20220406
  3. AZATHIOPRINE [Concomitant]
     Active Substance: AZATHIOPRINE
     Indication: Colitis ulcerative
     Route: 048
     Dates: start: 20230308
  4. PENTASA [Concomitant]
     Active Substance: MESALAMINE
     Indication: Colitis ulcerative
     Dosage: STRENGTH-1G
     Route: 054
     Dates: start: 20250813

REACTIONS (1)
  - Haematochezia [Recovered/Resolved]

NARRATIVE: CASE EVENT DATE: 20251001
